FAERS Safety Report 9128763 (Version 1)
Quarter: 2013Q1

REPORT INFORMATION
  Report Type: Spontaneous
  Country: US (occurrence: US)
  Receive Date: 20130228
  Receipt Date: 20130228
  Transmission Date: 20140127
  Serious: No
  Sender: FDA-Public Use
  Company Number: US-ABBOTT-13P-163-1046638-00

PATIENT
  Age: 52 None
  Sex: Male
  Weight: 93.98 kg

DRUGS (2)
  1. ANDROGEL [Suspect]
     Indication: PRODUCT USED FOR UNKNOWN INDICATION
     Dosage: 2 PUMPS A DAY
     Dates: start: 201210, end: 201211
  2. ANDROGEL [Suspect]
     Dosage: ALTERNATE 2 PUMPS EVERY OTHER DAY WITH 1 PUMP
     Dates: start: 201211, end: 20121220

REACTIONS (12)
  - Agitation [Recovered/Resolved]
  - Aggression [Recovered/Resolved]
  - Aggression [Recovered/Resolved]
  - Depressed mood [Recovered/Resolved]
  - Crying [Recovered/Resolved]
  - Loss of consciousness [Recovered/Resolved]
  - Vomiting [Recovered/Resolved]
  - Suicidal ideation [Recovered/Resolved]
  - Adrenal disorder [Unknown]
  - Blood testosterone increased [Recovered/Resolved]
  - Fatigue [Recovered/Resolved]
  - Depression [Recovered/Resolved]
